FAERS Safety Report 7760004-8 (Version None)
Quarter: 2011Q3

REPORT INFORMATION
  Report Type: 
  Country: None (occurrence: None)
  Receive Date: 20110915
  Receipt Date: 20110902
  Transmission Date: 20111222
  Serious: Yes (Life-Threatening)
  Sender: FDA-Public Use
  Company Number: TUK2011A00132

PATIENT
  Age: 79 Year
  Sex: Male

DRUGS (12)
  1. ACTOS (PIOGLIRAZONE HYDROCHLORIDE) [Suspect]
     Indication: PRODUCT USED FOR UNKNOWN INDICATION
     Dosage: ORAL
     Route: 048
     Dates: start: 20020412, end: 20110824
  2. RAMIPRIL [Concomitant]
  3. SIMVASTATIN [Concomitant]
  4. SOLIFENACIN SUCCINATE (SOLIFENACIN SUCCINATE) [Concomitant]
  5. SALAMOL (SALBUTAMOL) [Concomitant]
  6. ASPIRIN [Concomitant]
  7. NATEGLINIDE [Concomitant]
  8. FUROSEMIDE [Concomitant]
  9. ACETAMINOPHEN AND CODEINE PHOSPHATE [Concomitant]
  10. METFORMIN HCL [Concomitant]
  11. ZOPICLONE (ZOPICLONE) [Concomitant]
  12. OMEPRAZOLE [Concomitant]

REACTIONS (1)
  - BLADDER TRANSITIONAL CELL CARCINOMA STAGE III [None]
